FAERS Safety Report 15800373 (Version 2)
Quarter: 2019Q1

REPORT INFORMATION
  Report Type: Spontaneous
  Country: KR (occurrence: KR)
  Receive Date: 20190108
  Receipt Date: 20190111
  Transmission Date: 20190417
  Serious: Yes (Life-Threatening)
  Sender: FDA-Public Use
  Company Number: PHHY2019KR001598

PATIENT
  Age: 75 Year
  Sex: Female

DRUGS (2)
  1. RIFAMPICIN [Suspect]
     Active Substance: RIFAMPIN
     Indication: PULMONARY TUBERCULOSIS
     Dosage: UNK
     Route: 065
  2. ISONIAZID. [Suspect]
     Active Substance: ISONIAZID
     Indication: PULMONARY TUBERCULOSIS
     Dosage: UNK
     Route: 065

REACTIONS (3)
  - Pyrexia [Unknown]
  - Drug reaction with eosinophilia and systemic symptoms [Unknown]
  - Skin exfoliation [Unknown]
